FAERS Safety Report 12971655 (Version 1)
Quarter: 2016Q4

REPORT INFORMATION
  Report Type: Other
  Country: BE (occurrence: BE)
  Receive Date: 20161123
  Receipt Date: 20161123
  Transmission Date: 20170207
  Serious: Yes (Life-Threatening)
  Sender: FDA-Public Use
  Company Number: BE-ALSI-201600339

PATIENT
  Age: 20 Year
  Sex: Male

DRUGS (2)
  1. NITROUS OXIDE. [Suspect]
     Active Substance: NITROUS OXIDE
     Indication: DRUG ABUSE
  2. ALCOHOL ETHANOL [Suspect]
     Active Substance: ALCOHOL

REACTIONS (3)
  - Impaired driving ability [Recovered/Resolved]
  - Drug abuse [Recovered/Resolved]
  - Injury [Unknown]
